FAERS Safety Report 15396026 (Version 1)
Quarter: 2018Q3

REPORT INFORMATION
  Report Type: Spontaneous
  Country: AU (occurrence: AU)
  Receive Date: 20180918
  Receipt Date: 20180918
  Transmission Date: 20181010
  Serious: Yes (Other)
  Sender: FDA-Public Use
  Company Number: AU-LPDUSPRD-20181701

PATIENT
  Sex: Male

DRUGS (1)
  1. FERINJECT [Suspect]
     Active Substance: FERRIC CARBOXYMALTOSE
     Dosage: 250 ML SALINE (1000 MG)
     Route: 041
     Dates: start: 20180907

REACTIONS (5)
  - Depressed level of consciousness [Unknown]
  - Nausea [Recovered/Resolved]
  - Bradycardia [Unknown]
  - Seizure like phenomena [Unknown]
  - Dizziness [Recovered/Resolved]

NARRATIVE: CASE EVENT DATE: 20180907
